FAERS Safety Report 4388558-2 (Version None)
Quarter: 2004Q2

REPORT INFORMATION
  Report Type: 
  Country: None (occurrence: None)
  Receive Date: 20040624
  Receipt Date: 20040611
  Transmission Date: 20050107
  Serious: Yes (Hospitalization)
  Sender: FDA-Public Use
  Company Number: 200410143BBE

PATIENT
  Age: 70 Year
  Sex: Male
  Weight: 81.1939 kg

DRUGS (4)
  1. GAMUNEX [Suspect]
     Dosage: 30 G, TOTAL DAILY, INTRAVENOUS
     Route: 042
     Dates: start: 20040106
  2. GAMUNEX [Suspect]
     Dosage: 30 G, TOTAL DAILY, INTRAVENOUS
     Route: 042
     Dates: start: 20040203
  3. GAMUNEX [Suspect]
     Dosage: 30 G, TOTAL DAILY, INTRAVENOUS
     Route: 042
     Dates: start: 20040302
  4. GAMUNEX [Suspect]

REACTIONS (1)
  - PNEUMONIA [None]
